FAERS Safety Report 6730169-5 (Version None)
Quarter: 2010Q2

REPORT INFORMATION
  Report Type: 
  Country: None (occurrence: None)
  Receive Date: 20100512
  Receipt Date: 20100325
  Transmission Date: 20101027
  Serious: No
  Sender: FDA-Public Use
  Company Number: 1000012803

PATIENT
  Age: 63 Year
  Sex: Female

DRUGS (12)
  1. SAVELLA [Suspect]
     Indication: FIBROMYALGIA
     Dosage: SEE IMAGE
     Route: 048
     Dates: start: 20100316, end: 20100316
  2. SAVELLA [Suspect]
     Indication: PAIN
     Dosage: SEE IMAGE
     Route: 048
     Dates: start: 20100316, end: 20100316
  3. SAVELLA [Suspect]
     Indication: FIBROMYALGIA
     Dosage: SEE IMAGE
     Route: 048
     Dates: start: 20100317, end: 20100318
  4. SAVELLA [Suspect]
     Indication: PAIN
     Dosage: SEE IMAGE
     Route: 048
     Dates: start: 20100317, end: 20100318
  5. SAVELLA [Suspect]
     Indication: FIBROMYALGIA
     Dosage: SEE IMAGE
     Route: 048
     Dates: start: 20100319, end: 20100322
  6. SAVELLA [Suspect]
     Indication: PAIN
     Dosage: SEE IMAGE
     Route: 048
     Dates: start: 20100319, end: 20100322
  7. SAVELLA [Suspect]
     Indication: FIBROMYALGIA
     Dosage: SEE IMAGE
     Route: 048
     Dates: start: 20100323
  8. SAVELLA [Suspect]
     Indication: PAIN
     Dosage: SEE IMAGE
     Route: 048
     Dates: start: 20100323
  9. TRAMADOL (50 MILLIGRAM, TABLETS) [Suspect]
     Indication: PAIN
     Dosage: (200 MG, AS REQUIRED), ORAL
     Route: 048
  10. NEURONTIN [Suspect]
     Indication: PAIN
     Dosage: (1200 MG, AS REQUIRED), ORAL
     Route: 048
  11. XANAX (1 MILLIGRAM, TABLETS) [Concomitant]
  12. AMBIEN (TABLETS) [Concomitant]

REACTIONS (7)
  - AGITATION [None]
  - BURNING SENSATION [None]
  - DIARRHOEA [None]
  - DYSKINESIA [None]
  - FATIGUE [None]
  - HYPERHIDROSIS [None]
  - INSOMNIA [None]
